FAERS Safety Report 18712213 (Version 1)
Quarter: 2021Q1

REPORT INFORMATION
  Report Type: Spontaneous
  Country: US (occurrence: US)
  Receive Date: 20210107
  Receipt Date: 20210107
  Transmission Date: 20210419
  Serious: Yes (Hospitalization)
  Sender: FDA-Public Use
  Company Number: None

PATIENT
  Age: 76 Year
  Sex: Female
  Weight: 71.1 kg

DRUGS (9)
  1. CAPECITABINE. [Suspect]
     Active Substance: CAPECITABINE
     Indication: COLON CANCER
     Route: 048
     Dates: start: 20201120
  2. ASPIRIN LOW DOSE PO [Concomitant]
  3. CALCIUM + VITD3 PO [Concomitant]
  4. CAPECITABINE. [Suspect]
     Active Substance: CAPECITABINE
     Indication: COLON CANCER
     Route: 048
     Dates: start: 20201112
  5. TYLENOL EXTRA STRENGTH PO [Concomitant]
  6. METOPROLOL TARTRATE PO [Concomitant]
  7. PLAVIX PO [Concomitant]
  8. ATORVASTATIN PO [Concomitant]
  9. ISOSORBIDE MONONITRATE ER PO [Concomitant]

REACTIONS (2)
  - Clostridium difficile infection [None]
  - Full blood count decreased [None]

NARRATIVE: CASE EVENT DATE: 20201229
